FAERS Safety Report 10406062 (Version 1)
Quarter: 2014Q1

REPORT INFORMATION
  Report Type: Spontaneous
  Country: US (occurrence: None)
  Receive Date: 20140228
  Receipt Date: 20140228
  Transmission Date: 20141002
  Serious: No
  Sender: FDA-Public Use
  Company Number: 22517LEO

PATIENT
  Age: 55 Year
  Sex: Female

DRUGS (1)
  1. PICATO (INGENOL MEBUTATE) (0.015 %, GEL) [Suspect]
     Indication: PRECANCEROUS SKIN LESION
     Dosage: DERMAL
     Dates: start: 20131201, end: 20131203

REACTIONS (5)
  - Application site vesicles [None]
  - Application site swelling [None]
  - Application site pain [None]
  - Off label use [None]
  - Inappropriate schedule of drug administration [None]
